FAERS Safety Report 7765763-6 (Version None)
Quarter: 2011Q3

REPORT INFORMATION
  Report Type: 
  Country: None (occurrence: None)
  Receive Date: 20110921
  Receipt Date: 20110913
  Transmission Date: 20111222
  Serious: Yes (Hospitalization)
  Sender: FDA-Public Use
  Company Number: US-CELGENEUS-CA043-07-0655

PATIENT
  Sex: Female
  Weight: 60.8 kg

DRUGS (16)
  1. MULTI-VITAMIN [Concomitant]
     Indication: PROPHYLAXIS
     Dosage: 1 TAB
     Route: 048
     Dates: start: 20061101
  2. COMPAZINE [Concomitant]
     Indication: NAUSEA
     Dosage: 10 MILLIGRAM
     Route: 048
     Dates: start: 20070212
  3. ASPIRIN [Concomitant]
     Indication: PROPHYLAXIS
     Dosage: 81 MILLIGRAM
     Route: 048
     Dates: start: 20041101
  4. OXYCODONE HCL AND ACETAMINOPHEN [Concomitant]
     Indication: PAIN
     Dosage: 7.5/325
     Route: 048
     Dates: start: 20060206
  5. RESTORIL [Concomitant]
     Indication: INSOMNIA
     Dosage: 15 MILLIGRAM
     Route: 048
     Dates: start: 20070320
  6. FUROSEMIDE [Concomitant]
     Dosage: 80 MILLIGRAM
     Route: 048
     Dates: start: 20041101, end: 20070417
  7. NEURONTIN [Concomitant]
     Dosage: 300 MILLIGRAM
     Route: 048
     Dates: start: 20070725
  8. TOPROL-XL [Concomitant]
     Indication: HYPERTENSION
     Route: 048
     Dates: start: 20051101
  9. POTASSIUM CHLORIDE [Concomitant]
     Indication: PROPHYLAXIS
     Dosage: 20 MILLIGRAM
     Route: 048
     Dates: start: 20041101
  10. DIGOXIN [Concomitant]
     Indication: PROPHYLAXIS
     Dosage: .125 MILLIGRAM
     Route: 048
     Dates: start: 20041101
  11. ABRAXANE [Suspect]
     Dosage: INITIAL DOSE 213 MG/DATE OF LAST DOSE 25-JUL-2007/LAST DEOSE 161 MG
     Route: 041
     Dates: start: 20070220
  12. BEVACIZUMAB [Suspect]
     Dosage: INITIAL DOSE 690 MG/DATE OF LAST DOSE 25-JUL-20007/LAST DOSE 581 MG
     Route: 041
     Dates: start: 20070220
  13. ACTOS [Concomitant]
     Dosage: 30 MILLIGRAM
     Route: 048
     Dates: start: 20061101
  14. ATIVAN [Concomitant]
     Indication: INSOMNIA
     Dosage: 1 MILLIGRAM
     Route: 048
     Dates: start: 20070227
  15. FUROSEMIDE [Concomitant]
     Indication: DIURETIC THERAPY
     Dosage: 20 MILLIGRAM
     Route: 048
     Dates: start: 20070425, end: 20070801
  16. COZAAR [Concomitant]
     Indication: HYPERTENSION
     Dosage: 50 MILLIGRAM
     Route: 048
     Dates: start: 20041101

REACTIONS (1)
  - DIZZINESS [None]
